FAERS Safety Report 26057935 (Version 1)
Quarter: 2025Q4

REPORT INFORMATION
  Report Type: Spontaneous
  Country: US (occurrence: US)
  Receive Date: 20251118
  Receipt Date: 20251118
  Transmission Date: 20260119
  Serious: No
  Sender: RANBAXY
  Company Number: US-MIMS-SUN-2025-USA-53919

PATIENT

DRUGS (1)
  1. LORATADINE [Suspect]
     Active Substance: LORATADINE
     Indication: Product used for unknown indication
     Dosage: 2 TEASPOONFULS
     Route: 048

REACTIONS (1)
  - Off label use [Unknown]
